FAERS Safety Report 24919791 (Version 1)
Quarter: 2025Q1

REPORT INFORMATION
  Report Type: Report from Study
  Country: US (occurrence: US)
  Receive Date: 20250204
  Receipt Date: 20250204
  Transmission Date: 20250408
  Serious: No
  Sender: EXELIXIS
  Company Number: US-EXELIXIS-CABO-23072293

PATIENT
  Sex: Male

DRUGS (4)
  1. CABOMETYX [Suspect]
     Active Substance: CABOZANTINIB S-MALATE
     Indication: Renal cancer
     Dates: start: 202306
  2. KEPPRA [Concomitant]
     Active Substance: LEVETIRACETAM
  3. ELIQUIS [Concomitant]
     Active Substance: APIXABAN
     Indication: Thrombosis
  4. PROBENECID [Concomitant]
     Active Substance: PROBENECID

REACTIONS (3)
  - Chills [Unknown]
  - Fatigue [Unknown]
  - Decreased appetite [Unknown]
